FAERS Safety Report 7581022-9 (Version None)
Quarter: 2011Q2

REPORT INFORMATION
  Report Type: 
  Country: None (occurrence: None)
  Receive Date: 20110629
  Receipt Date: 20110624
  Transmission Date: 20111010
  Serious: Yes (Hospitalization)
  Sender: FDA-Public Use
  Company Number: FR-PFIZER INC-2011127128

PATIENT
  Age: 4 Year
  Sex: Female

DRUGS (1)
  1. SOMATROPIN [Suspect]
     Indication: PRADER-WILLI SYNDROME
     Dosage: 4.6 MG, WEEKLY
     Dates: start: 20080601

REACTIONS (1)
  - TONSILLAR HYPERTROPHY [None]
